FAERS Safety Report 4990425-8 (Version None)
Quarter: 2006Q2

REPORT INFORMATION
  Report Type: 
  Country: None (occurrence: None)
  Receive Date: 20060427
  Receipt Date: 20060417
  Transmission Date: 20061013
  Serious: Yes (Other)
  Sender: FDA-Public Use
  Company Number: 222382

PATIENT
  Age: 40 Year
  Sex: Female
  Weight: 120 kg

DRUGS (6)
  1. RITUXIMAB OR PLACEBO (RITUXIMAB) CONC FOR SOLUTION FOR INFUSION [Suspect]
     Indication: SYSTEMIC LUPUS ERYTHEMATOSUS
     Dosage: SEE IMAGE
     Route: 042
     Dates: start: 20050616, end: 20050630
  2. RITUXIMAB OR PLACEBO (RITUXIMAB) CONC FOR SOLUTION FOR INFUSION [Suspect]
     Indication: SYSTEMIC LUPUS ERYTHEMATOSUS
     Dosage: SEE IMAGE
     Route: 042
     Dates: start: 20051201, end: 20051215
  3. RITUXIMAB OR PLACEBO (RITUXIMAB) CONC FOR SOLUTION FOR INFUSION [Suspect]
  4. PREDNISONE TAB [Concomitant]
  5. CELLCEPT [Concomitant]
  6. IMURAN [Concomitant]

REACTIONS (12)
  - DYSPNOEA [None]
  - FATIGUE [None]
  - GLOMERULONEPHRITIS PROLIFERATIVE [None]
  - HAEMATURIA [None]
  - HAEMOGLOBIN DECREASED [None]
  - LUPUS NEPHRITIS [None]
  - NAUSEA [None]
  - NEURALGIA [None]
  - PERICARDIAL DISEASE [None]
  - PYREXIA [None]
  - RASH [None]
  - REBOUND EFFECT [None]
